FAERS Safety Report 20606528 (Version 1)
Quarter: 2022Q1

REPORT INFORMATION
  Report Type: Spontaneous
  Country: ES (occurrence: ES)
  Receive Date: 20220317
  Receipt Date: 20220317
  Transmission Date: 20220424
  Serious: Yes (Other)
  Sender: FDA-Public Use
  Company Number: ES-FAESFV-2022-7199

PATIENT
  Age: 56 Year
  Sex: Male

DRUGS (9)
  1. ALLOPURINOL [Suspect]
     Active Substance: ALLOPURINOL
     Indication: Gout
     Dosage: 300 MILLIGRAM/ START DATE: NOV-2018
     Dates: end: 201812
  2. BETAMETHASONE [Suspect]
     Active Substance: BETAMETHASONE
     Indication: Gout
     Dosage: START DATE: JAN-2019
     Route: 030
     Dates: end: 201901
  3. BETAMETHASONE [Suspect]
     Active Substance: BETAMETHASONE
     Indication: Gout
     Dosage: START DATE: JUN-2019
     Dates: end: 201906
  4. DEFLAZACORT [Suspect]
     Active Substance: DEFLAZACORT
     Indication: Gout
     Dosage: START DATE: NOV-2018
     Dates: end: 201909
  5. COLCHICINE [Concomitant]
     Active Substance: COLCHICINE
     Indication: Gout
     Dosage: 0.5 MILLIGRAM, QD/START DATE: NOV-2018
     Dates: end: 202005
  6. DEXKETOPROFEN [Concomitant]
     Active Substance: DEXKETOPROFEN
     Indication: Gout
     Dosage: START DATE: NOV-2018
     Dates: end: 201901
  7. FEBUXOSTAT [Concomitant]
     Active Substance: FEBUXOSTAT
     Indication: Gout
     Dosage: 80 MILLIGRAM/ START DATE: DEC-2018
  8. ANAKINRA [Concomitant]
     Active Substance: ANAKINRA
     Indication: Gout
     Dosage: ADMINISTERED SEVERAL TIMES IN 2019:MARCH(5 DAYS),APRIL (3 DAYS),MAY(7 DAYS),OCT
     Dates: end: 201906
  9. NAPROXEN [Concomitant]
     Active Substance: NAPROXEN
     Indication: Gout
     Dosage: START DATE: JAN-2019
     Dates: end: 201904

REACTIONS (2)
  - Drug dependence [Recovered/Resolved]
  - Pruritus [Recovered/Resolved]

NARRATIVE: CASE EVENT DATE: 20180101
